FAERS Safety Report 19363460 (Version 1)
Quarter: 2021Q2

REPORT INFORMATION
  Report Type: Spontaneous
  Country: US (occurrence: US)
  Receive Date: 20210602
  Receipt Date: 20210602
  Transmission Date: 20210717
  Serious: Yes (Hospitalization)
  Sender: FDA-Public Use
  Company Number: None

PATIENT
  Age: 13 Year
  Sex: Female
  Weight: 94.2 kg

DRUGS (6)
  1. ONCASPAR [Suspect]
     Active Substance: PEGASPARGASE
     Dates: end: 20210526
  2. METHOTREXATE. [Suspect]
     Active Substance: METHOTREXATE
     Dates: end: 20210526
  3. CYCLOPHOSPHAMIDE. [Suspect]
     Active Substance: CYCLOPHOSPHAMIDE
     Dates: end: 20210512
  4. VINCRISTINE SULFATE. [Suspect]
     Active Substance: VINCRISTINE SULFATE
     Dates: end: 20210526
  5. MERCAPTOPURINE. [Suspect]
     Active Substance: MERCAPTOPURINE
     Indication: DRUG THERAPY
     Dates: end: 20210525
  6. CYTARABINE. [Suspect]
     Active Substance: CYTARABINE
     Dates: end: 20210519

REACTIONS (9)
  - Escherichia test positive [None]
  - Tachycardia [None]
  - Tenderness [None]
  - Pyrexia [None]
  - Neutropenia [None]
  - Abdominal pain [None]
  - Appendicitis [None]
  - Hyperglycaemia [None]
  - Back pain [None]

NARRATIVE: CASE EVENT DATE: 20200529
